FAERS Safety Report 9170399 (Version 1)
Quarter: 2013Q1

REPORT INFORMATION
  Report Type: Report from Study
  Country: CA (occurrence: CA)
  Receive Date: 20130319
  Receipt Date: 20130319
  Transmission Date: 20140127
  Serious: Yes (Hospitalization)
  Sender: FDA-Public Use
  Company Number: CA-JNJFOC-20130303355

PATIENT
  Sex: Male
  Weight: 80 kg

DRUGS (3)
  1. REMICADE [Suspect]
     Indication: COLITIS ULCERATIVE
     Route: 042
     Dates: start: 20120918, end: 20130130
  2. 6 MP [Concomitant]
     Dosage: 2 1/2 TABLETS
     Route: 048
  3. ASACOL [Concomitant]
     Dosage: 2 1/2 TABLETS
     Route: 048

REACTIONS (1)
  - Colectomy [Unknown]
